FAERS Safety Report 8608183 (Version 4)
Quarter: 2014Q1

REPORT INFORMATION
  Report Type: Spontaneous
  Country: US (occurrence: US)
  Receive Date: 20120611
  Receipt Date: 20140113
  Transmission Date: 20141002
  Serious: Yes (Hospitalization, Disabling, Other)
  Sender: FDA-Public Use
  Company Number: US-ASTRAZENECA-2012SE35513

PATIENT
  Age: 56 Year
  Sex: Female
  Weight: 135.2 kg

DRUGS (14)
  1. NEXIUM [Suspect]
     Indication: ULCER
     Dosage: TWO TIMES A DAY
     Route: 048
     Dates: end: 2011
  2. NEXIUM [Suspect]
     Indication: ULCER
     Route: 048
     Dates: start: 20061107
  3. TAGAMET [Concomitant]
     Dosage: ONCE A DAY
  4. ZANTAC [Concomitant]
     Dosage: TWICE A  DAY
  5. PEPCID [Concomitant]
     Dosage: ONCE A DAY
  6. AMBIEN [Concomitant]
     Dates: start: 20061004
  7. VICODIN [Concomitant]
     Dosage: 5/500
     Dates: start: 20060410
  8. AVAPRO [Concomitant]
  9. DIFLUCAN [Concomitant]
  10. LORAZEPAM [Concomitant]
     Dates: start: 20040207
  11. NORVASC [Concomitant]
     Dates: start: 20060413
  12. PROMETHAZINE [Concomitant]
     Dates: start: 20060706
  13. PREDNISONE [Concomitant]
     Dates: start: 20101030
  14. SERTRALINE [Concomitant]
     Dates: start: 20080129

REACTIONS (8)
  - Cerebrovascular accident [Unknown]
  - Ankle fracture [Unknown]
  - Fall [Unknown]
  - Fibula fracture [Unknown]
  - Joint dislocation [Unknown]
  - Osteoporosis [Unknown]
  - Multiple fractures [Unknown]
  - Foot fracture [Unknown]
